FAERS Safety Report 9394744 (Version 1)
Quarter: 2013Q3

REPORT INFORMATION
  Report Type: Spontaneous
  Country: LT (occurrence: None)
  Receive Date: 20130705
  Receipt Date: 20130705
  Transmission Date: 20140515
  Serious: Yes (Hospitalization)
  Sender: FDA-Public Use
  Company Number: FK201302297

PATIENT
  Age: 41 Year
  Sex: Male
  Weight: 50 kg

DRUGS (5)
  1. METHYLPREDNISOLONE (MANUFACTURER UNKNOWN) (METHYLPREDNISOLONE SODIUM SUCCINATE) (METHYLPREDNISOLONE SODIUM SUCCINATE) [Suspect]
     Indication: IMMUNOSUPPRESSION
     Dates: start: 201001
  2. CYCLOSPORINE (CICLOSPORIN) [Suspect]
     Indication: IMMUNOSUPPRESSION
     Dates: start: 201001
  3. AZATHIOPRINE [Suspect]
     Indication: IMMUNOSUPPRESSION
     Dates: start: 201001
  4. SIROLIMUS (SIROLIMUS) [Concomitant]
  5. MYCOPHENOLATE MOFETIL (MYCOPHENOLATE MOFETIL) [Concomitant]

REACTIONS (7)
  - Diffuse large B-cell lymphoma [None]
  - Hypoproteinaemia [None]
  - Gastritis erosive [None]
  - Hepatic neoplasm [None]
  - Spleen disorder [None]
  - Metastases to spleen [None]
  - Metastases to kidney [None]
